FAERS Safety Report 5149639-9 (Version None)
Quarter: 2006Q4

REPORT INFORMATION
  Report Type: 
  Country: None (occurrence: None)
  Receive Date: 20061113
  Receipt Date: 20060629
  Transmission Date: 20070319
  Serious: No
  Sender: FDA-Public Use
  Company Number: US-GLAXOSMITHKLINE-A0610807A

PATIENT
  Sex: Female

DRUGS (4)
  1. COREG [Suspect]
     Route: 048
     Dates: end: 20060401
  2. LASIX [Concomitant]
  3. COUMADIN [Concomitant]
  4. SPIRONOLACTONE [Concomitant]

REACTIONS (1)
  - FATIGUE [None]
